FAERS Safety Report 7113204-4 (Version None)
Quarter: 2010Q4

REPORT INFORMATION
  Report Type: 
  Country: None (occurrence: None)
  Receive Date: 20101119
  Receipt Date: 20091109
  Transmission Date: 20110411
  Serious: No
  Sender: FDA-Public Use
  Company Number: A0816083A

PATIENT
  Sex: Male

DRUGS (3)
  1. BUPROPION HCL [Suspect]
     Indication: DEPRESSION
     Dosage: 150MG PER DAY
     Route: 048
     Dates: start: 20090909
  2. PROZAC [Concomitant]
  3. TRYPTAN [Concomitant]

REACTIONS (5)
  - MIGRAINE [None]
  - NOCTURIA [None]
  - OROPHARYNGEAL PAIN [None]
  - PARAESTHESIA [None]
  - TINNITUS [None]
